FAERS Safety Report 5767142-X (Version None)
Quarter: 2008Q2

REPORT INFORMATION
  Report Type: 
  Country: None (occurrence: None)
  Receive Date: 20080609
  Receipt Date: 20080529
  Transmission Date: 20081010
  Serious: Yes (Hospitalization)
  Sender: FDA-Public Use
  Company Number: 08P-062-0454043-00

PATIENT
  Sex: Male

DRUGS (3)
  1. SYNAGIS [Suspect]
     Indication: ANTIVIRAL PROPHYLAXIS
     Dosage: 100 MG, SUBCUTANEOUS
     Route: 058
     Dates: start: 20080111, end: 20080111
  2. SYNAGIS [Suspect]
     Indication: ANTIVIRAL PROPHYLAXIS
     Dosage: 100 MG, SUBCUTANEOUS
     Route: 058
     Dates: start: 20080314, end: 20080314
  3. PNEUMOCOCCAL CONJUGATE VACCINE [Concomitant]

REACTIONS (2)
  - BRADYCARDIA [None]
  - OXYGEN SATURATION DECREASED [None]
